FAERS Safety Report 7810024-X (Version None)
Quarter: 2011Q4

REPORT INFORMATION
  Report Type: 
  Country: None (occurrence: None)
  Receive Date: 20111012
  Receipt Date: 20110628
  Transmission Date: 20120403
  Serious: No
  Sender: FDA-Public Use
  Company Number: US-GLAXOSMITHKLINE-A0933456A

PATIENT
  Age: 75 Year
  Sex: Male

DRUGS (11)
  1. LEVOTHYROXINE SODIUM [Concomitant]
  2. CYANOCOBALAMIN [Concomitant]
  3. NORCO [Concomitant]
  4. ADVAIR DISKUS 100/50 [Concomitant]
  5. SIMVASTATIN [Concomitant]
  6. SERTRALINE HYDROCHLORIDE [Concomitant]
  7. MIRALAX [Concomitant]
  8. JALYN [Suspect]
     Indication: BENIGN PROSTATIC HYPERPLASIA
     Dosage: 1CAP PER DAY
     Route: 048
     Dates: start: 20110525
  9. HYTRIN [Concomitant]
  10. CELEBREX [Concomitant]
  11. OXYCONTIN [Concomitant]

REACTIONS (1)
  - BACK PAIN [None]
